FAERS Safety Report 8737648 (Version 4)
Quarter: 2013Q4

REPORT INFORMATION
  Report Type: Spontaneous
  Country: JP (occurrence: JP)
  Receive Date: 20120822
  Receipt Date: 20131106
  Transmission Date: 20140711
  Serious: Yes (Life-Threatening)
  Sender: FDA-Public Use
  Company Number: JP-009507513-1208JPN003887

PATIENT
  Age: 78 Year
  Sex: Female

DRUGS (8)
  1. NU-LOTAN TABLETS 50MG [Suspect]
     Indication: HYPERTENSION
     Dosage: 50 MG, QD
     Route: 048
     Dates: end: 20120731
  2. CIRCULETIN [Concomitant]
     Dosage: DIVIDED DOSE FREQUENCY UNK
     Route: 048
  3. AMLODIN (AMLODIPINE BESYLATE) [Concomitant]
     Dosage: DIVIDED DOSE FREQUENCY UNK
     Route: 048
  4. ALFAROL [Concomitant]
     Dosage: DIVIDED DOSE FREQUENCY UNK
     Route: 048
  5. PARIET [Concomitant]
     Indication: GASTRIC ULCER
     Dosage: DIVIDED DOSE FREQUENCY UNK
     Route: 048
  6. ADOAIR [Concomitant]
     Dosage: DIVIDED DOSE FREQUENCY UNK
     Route: 055
  7. MEVALOTIN [Concomitant]
     Dosage: DIVIDED DOSE FREQUENCY UNK
     Route: 048
  8. GRANDAXIN [Concomitant]
     Dosage: DAILY DOSAGE UNKNOWN
     Route: 048

REACTIONS (2)
  - Hypoglycaemia [Recovered/Resolved]
  - Dizziness [Recovering/Resolving]
